FAERS Safety Report 8274289-5 (Version None)
Quarter: 2012Q2

REPORT INFORMATION
  Report Type: 
  Country: None (occurrence: None)
  Receive Date: 20120411
  Receipt Date: 20120411
  Transmission Date: 20120825
  Serious: Yes (Other)
  Sender: FDA-Public Use
  Company Number: None

PATIENT
  Age: 23 Year
  Sex: Female
  Weight: 74.389 kg

DRUGS (2)
  1. PREVPAC [Suspect]
     Indication: INFECTION
     Dosage: 14 PT. CARDS
     Route: 048
     Dates: start: 20120312, end: 20120326
  2. PREVPAC [Suspect]
     Indication: GASTRITIS
     Dosage: 14 PT. CARDS
     Route: 048
     Dates: start: 20120312, end: 20120326

REACTIONS (3)
  - MENORRHAGIA [None]
  - MIGRAINE [None]
  - ABDOMINAL PAIN UPPER [None]
